FAERS Safety Report 6215161-1 (Version None)
Quarter: 2009Q2

REPORT INFORMATION
  Report Type: 
  Country: None (occurrence: None)
  Receive Date: 20090604
  Receipt Date: 20090603
  Transmission Date: 20091009
  Serious: Yes (Life-Threatening, Other)
  Sender: FDA-Public Use
  Company Number: US-PFIZER INC-2008156724

PATIENT
  Age: 28 Year
  Sex: Female

DRUGS (4)
  1. GEODON [Suspect]
     Dosage: 240 MG, 1X/DAY
  2. SEROQUEL [Concomitant]
  3. ZOFRAN [Concomitant]
  4. ALL OTHER THERAPEUTIC PRODUCTS [Concomitant]

REACTIONS (4)
  - BLOOD POTASSIUM DECREASED [None]
  - BULIMIA NERVOSA [None]
  - CARDIAC PACEMAKER INSERTION [None]
  - TORSADE DE POINTES [None]
